FAERS Safety Report 23934774 (Version 5)
Quarter: 2025Q4

REPORT INFORMATION
  Report Type: Report from Study
  Country: JP (occurrence: JP)
  Receive Date: 20240604
  Receipt Date: 20251026
  Transmission Date: 20260118
  Serious: Yes (Life-Threatening, Hospitalization, Other)
  Sender: ABBVIE
  Company Number: JP-TAKEDA-2018TJP030401

PATIENT
  Age: 62 Year
  Sex: Male
  Weight: 57 kg

DRUGS (14)
  1. LEUPROLIDE ACETATE [Suspect]
     Active Substance: LEUPROLIDE ACETATE
     Indication: Bulbospinal muscular atrophy congenital
     Dosage: FORM STRENGTH: 11.25 MILLIGRAM, EVERY 3 MONTHS
     Route: 058
     Dates: start: 20170921
  2. CARBOCYSTEINE [Concomitant]
     Active Substance: CARBOCYSTEINE
     Indication: Product used for unknown indication
     Dosage: FORM STRENGTH: 1500 MILLIGRAM
     Route: 065
     Dates: end: 20250722
  3. CANDESARTAN [Concomitant]
     Active Substance: CANDESARTAN
     Indication: Product used for unknown indication
     Route: 048
  4. Glycyron [Concomitant]
     Indication: Chronic hepatitis
     Dosage: 6 DOSAGE FORM
     Route: 048
     Dates: end: 20250722
  5. AMLODIPINE BESYLATE\CANDESARTAN CILEXETIL [Concomitant]
     Active Substance: AMLODIPINE BESYLATE\CANDESARTAN CILEXETIL
     Indication: Product used for unknown indication
     Dosage: FORM STRENGTH:1 DOSAGE FORM
     Route: 065
     Dates: end: 20250722
  6. WARFARIN [Concomitant]
     Active Substance: WARFARIN
     Indication: Product used for unknown indication
     Route: 048
     Dates: start: 2025
  7. WARFARIN [Concomitant]
     Active Substance: WARFARIN
     Indication: Product used for unknown indication
     Dosage: FORM STRENGTH:3 MILLIGRAMS, LAST ADMIN DATE: 2025
     Route: 048
     Dates: start: 20250722
  8. BISOPROLOL FUMARATE [Concomitant]
     Active Substance: BISOPROLOL FUMARATE
     Indication: Product used for unknown indication
     Dosage: FORM STRENGTH: 1.25 MILLIGRAM
     Route: 048
     Dates: end: 20250722
  9. VILDAGLIPTIN [Concomitant]
     Active Substance: VILDAGLIPTIN
     Indication: Product used for unknown indication
     Dosage: FORM STRENGTH:100 MILLIGRAM
     Route: 048
  10. FAMOTIDINE [Concomitant]
     Active Substance: FAMOTIDINE
     Indication: Gastritis
     Dosage: FORM STRENGTH: 20 MILLIGRAM
     Route: 065
     Dates: end: 20250722
  11. GLIMEPIRIDE [Concomitant]
     Active Substance: GLIMEPIRIDE
     Indication: Product used for unknown indication
     Dosage: FORM STRENGTH:2 MILLIGRAM
     Route: 048
  12. GLIMEPIRIDE [Concomitant]
     Active Substance: GLIMEPIRIDE
     Indication: Product used for unknown indication
     Dosage: FORM STRENGTH:1 MILLIGRAM
     Route: 048
     Dates: end: 20250722
  13. Tranexamic acide [Concomitant]
     Indication: Product used for unknown indication
     Dosage: FORM STRENGTH: 750 MILLIGRAM
     Route: 065
     Dates: end: 20250722
  14. PIOGLITAZONE HYDROCHLORIDE [Concomitant]
     Active Substance: PIOGLITAZONE HYDROCHLORIDE
     Indication: Product used for unknown indication
     Dosage: FORM STRENGTH: 30 MILLIGRAM
     Route: 065
     Dates: end: 20250722

REACTIONS (4)
  - Pneumonia aspiration [Recovering/Resolving]
  - Lipid metabolism disorder [Recovering/Resolving]
  - Diabetes mellitus [Recovering/Resolving]
  - Fibula fracture [Not Recovered/Not Resolved]

NARRATIVE: CASE EVENT DATE: 20171118
